FAERS Safety Report 23534277 (Version 1)
Quarter: 2024Q1

REPORT INFORMATION
  Report Type: Report from Study
  Country: CA (occurrence: CA)
  Receive Date: 20240216
  Receipt Date: 20240216
  Transmission Date: 20240410
  Serious: Yes (Hospitalization)
  Sender: FDA-Public Use
  Company Number: CA-ABBVIE-5570626

PATIENT
  Sex: Female

DRUGS (1)
  1. RINVOQ [Suspect]
     Active Substance: UPADACITINIB
     Indication: Rheumatoid arthritis
     Dosage: FORM STRENGTH: 15 MILLIGRAM, THERAPY END DATE: DEC 2023
     Route: 048
     Dates: start: 20231207

REACTIONS (4)
  - Abdominal pain [Unknown]
  - Haematochezia [Unknown]
  - Faeces discoloured [Unknown]
  - Rectal haemorrhage [Recovering/Resolving]
